FAERS Safety Report 15986825 (Version 1)
Quarter: 2019Q1

REPORT INFORMATION
  Report Type: Report from Study
  Country: US (occurrence: US)
  Receive Date: 20190220
  Receipt Date: 20190220
  Transmission Date: 20190418
  Serious: Yes (Hospitalization)
  Sender: FDA-Public Use
  Company Number: US-PFIZER INC-2019067063

PATIENT
  Age: 13 Year
  Sex: Female

DRUGS (10)
  1. DOXORUBICIN HCL [Suspect]
     Active Substance: DOXORUBICIN HYDROCHLORIDE
     Indication: ACUTE LYMPHOCYTIC LEUKAEMIA
     Dosage: 34.76 MG, SINGLE, DAYS 1,8 + 15
     Route: 042
     Dates: start: 20170328
  2. CYTARABINE. [Suspect]
     Active Substance: CYTARABINE
     Indication: ACUTE LYMPHOCYTIC LEUKAEMIA
     Dosage: 104 MG, SINGLE (ONCE), MG/M2
     Route: 042
     Dates: start: 20160930
  3. DEXAMETHASONE. [Suspect]
     Active Substance: DEXAMETHASONE
     Indication: ACUTE LYMPHOCYTIC LEUKAEMIA
     Dosage: 7 MG, BID, X 7DAYS
     Route: 048
     Dates: start: 20170328, end: 20170413
  4. INCB018424 [Suspect]
     Active Substance: RUXOLITINIB
     Indication: ACUTE LYMPHOCYTIC LEUKAEMIA
     Dosage: 55 MG, 2X/DAY
     Route: 048
     Dates: start: 20160930, end: 20170425
  5. INCB018424 [Suspect]
     Active Substance: RUXOLITINIB
     Dosage: 55 MG, 2X/DAY
     Route: 048
     Dates: start: 20170428
  6. PEGASPARGASE [Suspect]
     Active Substance: PEGASPARGASE
     Indication: ACUTE LYMPHOCYTIC LEUKAEMIA
     Dosage: 3450 IU, DAY 4, IU/M2
     Route: 042
     Dates: start: 20171014
  7. DEXAMETHASONE. [Suspect]
     Active Substance: DEXAMETHASONE
     Dosage: 7 MG, BID, X 7DAYS
     Route: 048
     Dates: start: 20170411
  8. THIOGUANINE [Suspect]
     Active Substance: THIOGUANINE
     Indication: ACUTE LYMPHOCYTIC LEUKAEMIA
     Dosage: 80 MG (MON-SAT) AND 100 MG (ON SUN)
     Route: 048
  9. VINCRISTINE SULFATE. [Suspect]
     Active Substance: VINCRISTINE SULFATE
     Indication: ACUTE LYMPHOCYTIC LEUKAEMIA
     Dosage: 2 MG, SINGLE, DAYS 1,8 + 15
     Route: 042
     Dates: start: 20161014
  10. METHOTREXATE SODIUM. [Suspect]
     Active Substance: METHOTREXATE SODIUM
     Indication: ACUTE LYMPHOCYTIC LEUKAEMIA
     Dosage: 15 MG, SINGLE (ONCE)
     Route: 037
     Dates: start: 20160930

REACTIONS (2)
  - Febrile neutropenia [Recovered/Resolved with Sequelae]
  - Febrile neutropenia [Recovered/Resolved]

NARRATIVE: CASE EVENT DATE: 20170414
